FAERS Safety Report 10039134 (Version 1)
Quarter: 2014Q1

REPORT INFORMATION
  Report Type: Spontaneous
  Country: US (occurrence: None)
  Receive Date: 20140306
  Receipt Date: 20140306
  Transmission Date: 20141002
  Serious: Yes (Other)
  Sender: FDA-Public Use
  Company Number: 163-21880-13062080

PATIENT
  Age: 70 Year
  Sex: Female
  Weight: 60 kg

DRUGS (8)
  1. REVLIMID [Suspect]
     Indication: PLASMA CELL MYELOMA
     Dosage: 25 MG, 1 IN 1 D, PO 11 /  / 2008 - UNKNOWN  THERAPY DATES
     Route: 048
     Dates: start: 200811
  2. CHLORHEXIDINE (CHLORPHEXIDINE) [Concomitant]
  3. LEXAPRO (ESCITALOPRAM OXALATE) (TABLETS) [Concomitant]
  4. DEXAMETHASONE (DEXAMETHASONE) [Concomitant]
  5. TYLENOL (PARACETAMOL) [Concomitant]
  6. FISH OIL (FISH OIL) [Concomitant]
  7. MULTIVITAMINS (MULTIVITAMINS) (TABLETS) [Concomitant]
  8. COUMADIN (WARFARIN SODIUM) [Concomitant]

REACTIONS (2)
  - Diarrhoea [None]
  - Thrombosis [None]
